FAERS Safety Report 9483919 (Version 2)
Quarter: 2013Q3

REPORT INFORMATION
  Report Type: Spontaneous
  Country: CA (occurrence: CA)
  Receive Date: 20130828
  Receipt Date: 20130828
  Transmission Date: 20140515
  Serious: Yes (Other)
  Sender: FDA-Public Use
  Company Number: CA-AMGEN-KDL349610

PATIENT
  Age: 55 Year
  Sex: Female
  Weight: 54.5 kg

DRUGS (5)
  1. ENBREL [Suspect]
     Indication: PSORIASIS
     Dosage: UNK UNK, 2 TIMES/WK
     Route: 065
     Dates: start: 20090522
  2. PYRIDOXINE HYDROCHLORIDE [Concomitant]
     Dosage: UNK UNK, UNK
  3. ISONIAZID [Concomitant]
     Dosage: UNK UNK, UNK
  4. HYDROXYCHLOROQUINE SULFATE [Concomitant]
     Dosage: 200 MG, QD
     Route: 048
  5. ACITRETIN [Concomitant]
     Dosage: 75 MG, QD

REACTIONS (9)
  - Hypersensitivity [Not Recovered/Not Resolved]
  - Rash generalised [Not Recovered/Not Resolved]
  - Erythema [Not Recovered/Not Resolved]
  - Dry skin [Not Recovered/Not Resolved]
  - Burning sensation [Not Recovered/Not Resolved]
  - Tuberculosis [Unknown]
  - Aspartate aminotransferase increased [Unknown]
  - Rheumatoid arthritis [Unknown]
  - Insomnia [Unknown]
